FAERS Safety Report 6944726-4 (Version None)
Quarter: 2010Q3

REPORT INFORMATION
  Report Type: 
  Country: None (occurrence: None)
  Receive Date: 20100827
  Receipt Date: 20100816
  Transmission Date: 20110219
  Serious: Yes (Other)
  Sender: FDA-Public Use
  Company Number: PHHY2010BE52403

PATIENT
  Sex: Female

DRUGS (2)
  1. GLEEVEC [Interacting]
     Indication: GASTROINTESTINAL STROMAL TUMOUR
     Dosage: 400 MG DAILY
  2. LOVAZA [Suspect]
     Dosage: UNK
     Route: 048
     Dates: start: 20100709, end: 20100809

REACTIONS (5)
  - DRUG INTERACTION [None]
  - DRUG TOLERANCE DECREASED [None]
  - GASTROINTESTINAL STROMAL TUMOUR [None]
  - MALIGNANT NEOPLASM PROGRESSION [None]
  - PERITONEAL LESION [None]
